FAERS Safety Report 19575705 (Version 1)
Quarter: 2021Q3

REPORT INFORMATION
  Report Type: Spontaneous
  Country: US (occurrence: US)
  Receive Date: 20210719
  Receipt Date: 20210719
  Transmission Date: 20211014
  Serious: No
  Sender: FDA-Public Use
  Company Number: US-SA-2021SA233001

PATIENT
  Age: 26 Year
  Sex: Female

DRUGS (5)
  1. DUPIXENT [Suspect]
     Active Substance: DUPILUMAB
     Indication: NASAL POLYPS
     Dosage: 300MG QOW
     Route: 058
     Dates: start: 202103, end: 202106
  2. VITAMIN D3 [Concomitant]
     Active Substance: CHOLECALCIFEROL
  3. VITAMIN C [Concomitant]
     Active Substance: ASCORBIC ACID
  4. PROBIOTICS NOS [Concomitant]
     Active Substance: PROBIOTICS NOS
  5. VITAMINS NOS [Concomitant]
     Active Substance: VITAMINS

REACTIONS (7)
  - Sinusitis [Unknown]
  - Sneezing [Unknown]
  - Cough [Unknown]
  - Upper-airway cough syndrome [Unknown]
  - Product dose omission issue [Unknown]
  - Condition aggravated [Unknown]
  - Rhinorrhoea [Unknown]

NARRATIVE: CASE EVENT DATE: 202106
